FAERS Safety Report 12294760 (Version 4)
Quarter: 2017Q1

REPORT INFORMATION
  Report Type: Report from Study
  Country: JP (occurrence: JP)
  Receive Date: 20160422
  Receipt Date: 20170314
  Transmission Date: 20170428
  Serious: Yes (Hospitalization, Other)
  Sender: FDA-Public Use
  Company Number: PHJP2016JP009734

PATIENT
  Age: 60 Year
  Sex: Male
  Weight: 68 kg

DRUGS (59)
  1. CERTICAN [Suspect]
     Active Substance: EVEROLIMUS
     Dosage: 1.75 MG, UNK
     Route: 048
     Dates: start: 20130522, end: 20130604
  2. CERTICAN [Suspect]
     Active Substance: EVEROLIMUS
     Dosage: 1.5 MG, UNK
     Route: 048
     Dates: start: 20140421, end: 20140615
  3. CERTICAN [Suspect]
     Active Substance: EVEROLIMUS
     Dosage: 0.75 MG, UNK
     Route: 048
     Dates: start: 20160614, end: 20160719
  4. MYCOPHENOLATE MOFETIL. [Concomitant]
     Active Substance: MYCOPHENOLATE MOFETIL
     Dosage: 500 MG, UNK
     Route: 048
     Dates: start: 20160614
  5. PROGRAF [Concomitant]
     Active Substance: TACROLIMUS\TACROLIMUS ANHYDROUS
     Dosage: 0.6 MG, UNK
     Route: 048
     Dates: start: 20161209, end: 20161210
  6. GASTER [Concomitant]
     Active Substance: FAMOTIDINE
     Dosage: 20 MG, UNK
     Route: 048
     Dates: start: 20160313
  7. CERTICAN [Suspect]
     Active Substance: EVEROLIMUS
     Dosage: 1.0 MG, UNK
     Route: 048
     Dates: start: 20140404, end: 20140420
  8. CERTICAN [Suspect]
     Active Substance: EVEROLIMUS
     Dosage: 1 MG, UNK
     Route: 048
     Dates: start: 20160316, end: 20160430
  9. CERTICAN [Suspect]
     Active Substance: EVEROLIMUS
     Dosage: 1 MG, UNK
     Route: 048
     Dates: start: 20160720, end: 20160923
  10. CATAPRES [Suspect]
     Active Substance: CLONIDINE HYDROCHLORIDE
     Dosage: 175 UG, UNK
     Route: 048
     Dates: start: 20140313, end: 20140916
  11. PROGRAF [Concomitant]
     Active Substance: TACROLIMUS\TACROLIMUS ANHYDROUS
     Dosage: 1.4 MG, UNK
     Route: 048
     Dates: start: 20130313, end: 20130402
  12. ZETIA [Concomitant]
     Active Substance: EZETIMIBE
     Indication: HYPERLIPIDAEMIA
     Dosage: 10 MG, UNK
     Route: 048
     Dates: start: 20140313
  13. CERTICAN [Suspect]
     Active Substance: EVEROLIMUS
     Dosage: 1.5 MG, UNK
     Route: 048
     Dates: start: 20130605
  14. CERTICAN [Suspect]
     Active Substance: EVEROLIMUS
     Dosage: 1.0 MG, UNK
     Route: 048
     Dates: start: 20140321, end: 20140401
  15. CERTICAN [Suspect]
     Active Substance: EVEROLIMUS
     Dosage: 0.75 MG, UNK
     Route: 048
     Dates: start: 20160924
  16. PROGRAF [Concomitant]
     Active Substance: TACROLIMUS\TACROLIMUS ANHYDROUS
     Indication: HEART TRANSPLANT
     Dosage: 2 MG, UNK
     Route: 048
     Dates: start: 20130219, end: 20130312
  17. PROGRAF [Concomitant]
     Active Substance: TACROLIMUS\TACROLIMUS ANHYDROUS
     Dosage: 0.8 MG, UNK
     Route: 048
     Dates: start: 20161211
  18. MEVALOTIN [Concomitant]
     Active Substance: PRAVASTATIN SODIUM
     Indication: PROPHYLAXIS
     Dosage: 10 MG, UNK
     Route: 048
     Dates: start: 20120718, end: 20130613
  19. ZETIA [Concomitant]
     Active Substance: EZETIMIBE
     Dosage: 5 MG, UNK
     Route: 048
     Dates: start: 20160405
  20. FEBURIC [Concomitant]
     Active Substance: FEBUXOSTAT
     Dosage: 20 MG, UNK
     Route: 048
     Dates: start: 20160313
  21. PERINDOPRIL ERBUMINE. [Concomitant]
     Active Substance: PERINDOPRIL ERBUMINE
     Indication: PROPHYLAXIS
     Dosage: 4 MG, UNK
     Route: 048
     Dates: start: 20130913
  22. CERTICAN [Suspect]
     Active Substance: EVEROLIMUS
     Dosage: 1.25 MG, UNK
     Route: 048
     Dates: start: 20160501, end: 20160613
  23. CATAPRES [Suspect]
     Active Substance: CLONIDINE HYDROCHLORIDE
     Indication: PROPHYLAXIS
     Dosage: 175 UG, UNK
     Route: 048
     Dates: start: 20140122
  24. CATAPRES [Suspect]
     Active Substance: CLONIDINE HYDROCHLORIDE
     Dosage: 150 UG, UNK
     Route: 048
     Dates: end: 20140401
  25. PREDONINE [Suspect]
     Active Substance: PREDNISOLONE
     Dosage: 10 MG, UNK
     Route: 048
  26. MYCOPHENOLATE MOFETIL. [Concomitant]
     Active Substance: MYCOPHENOLATE MOFETIL
     Dosage: 1250 MG, UNK
     Route: 048
  27. NORVASC [Concomitant]
     Active Substance: AMLODIPINE BESYLATE
     Indication: PROPHYLAXIS
     Dosage: 2.5 MG, UNK
     Route: 048
     Dates: start: 20121202
  28. ZETIA [Concomitant]
     Active Substance: EZETIMIBE
     Dosage: 10 MG, UNK
     Route: 048
     Dates: start: 20160313, end: 20160404
  29. CERTICAN [Suspect]
     Active Substance: EVEROLIMUS
     Indication: HEART TRANSPLANT
     Dosage: 1.0 MG, UNK
     Route: 048
     Dates: start: 20130313, end: 20130329
  30. CERTICAN [Suspect]
     Active Substance: EVEROLIMUS
     Dosage: 1.75 MG, UNK
     Route: 048
     Dates: start: 20140616, end: 20141104
  31. COVERSYL                                /BEL/ [Suspect]
     Active Substance: PERINDOPRIL ARGININE
     Indication: PROPHYLAXIS
     Dosage: 4 MG, UNK
     Route: 048
     Dates: end: 20140401
  32. COVERSYL                                /BEL/ [Suspect]
     Active Substance: PERINDOPRIL ARGININE
     Dosage: 4 MG, UNK
     Route: 048
  33. MYCOPHENOLATE MOFETIL. [Concomitant]
     Active Substance: MYCOPHENOLATE MOFETIL
     Indication: HEART TRANSPLANT
     Dosage: 1750 MG, UNK
     Route: 048
     Dates: start: 20121130, end: 20130323
  34. VALTREX [Concomitant]
     Active Substance: VALACYCLOVIR HYDROCHLORIDE
     Indication: ANTIVIRAL PROPHYLAXIS
     Dosage: 500 MG, UNK
     Route: 048
     Dates: start: 20111114, end: 20130508
  35. ATELEC [Concomitant]
     Active Substance: CILNIDIPINE
     Indication: PROPHYLAXIS
     Dosage: 5 MG, UNK
     Route: 048
     Dates: start: 20130913, end: 20140121
  36. CERTICAN [Suspect]
     Active Substance: EVEROLIMUS
     Dosage: 0.75 MG, UNK
     Route: 048
     Dates: start: 20140313, end: 20140320
  37. CERTICAN [Suspect]
     Active Substance: EVEROLIMUS
     Dosage: 1.5 MG, UNK
     Route: 048
     Dates: start: 20150211
  38. PREDONINE [Suspect]
     Active Substance: PREDNISOLONE
     Dosage: 1.25 MG, UNK
     Route: 048
     Dates: start: 20160313
  39. MYCOPHENOLATE MOFETIL. [Concomitant]
     Active Substance: MYCOPHENOLATE MOFETIL
     Dosage: 750 MG, UNK
     Route: 048
  40. PROGRAF [Concomitant]
     Active Substance: TACROLIMUS\TACROLIMUS ANHYDROUS
     Dosage: 1.0 MG, UNK
     Route: 048
     Dates: start: 20130403
  41. LIPITOR [Concomitant]
     Active Substance: ATORVASTATIN CALCIUM
     Dosage: 10 MG, UNK
     Route: 048
     Dates: start: 20160313, end: 20160901
  42. GASTER [Concomitant]
     Active Substance: FAMOTIDINE
     Indication: PROPHYLAXIS
     Dosage: 20 MG, UNK
     Route: 048
     Dates: start: 20140610
  43. FEBURIC [Concomitant]
     Active Substance: FEBUXOSTAT
     Indication: PROPHYLAXIS
     Dosage: 20 MG, UNK
     Route: 048
     Dates: start: 20140715
  44. PERINDOPRIL ERBUMINE. [Concomitant]
     Active Substance: PERINDOPRIL ERBUMINE
     Dosage: 4 MG, UNK
     Route: 048
     Dates: start: 20160313
  45. CERTICAN [Suspect]
     Active Substance: EVEROLIMUS
     Dosage: 1.5 MG, UNK
     Route: 048
     Dates: start: 20130330, end: 20130405
  46. CERTICAN [Suspect]
     Active Substance: EVEROLIMUS
     Dosage: 2.0 MG, UNK
     Route: 048
     Dates: start: 20130406, end: 20130521
  47. CERTICAN [Suspect]
     Active Substance: EVEROLIMUS
     Dosage: 0.75 MG, UNK
     Route: 048
     Dates: start: 20140402, end: 20140403
  48. CERTICAN [Suspect]
     Active Substance: EVEROLIMUS
     Dosage: 2.0 MG, UNK
     Route: 048
     Dates: start: 20141105, end: 20150210
  49. DIOVAN [Suspect]
     Active Substance: VALSARTAN
     Indication: PROPHYLAXIS
     Dosage: 40 MG, UNK
     Route: 048
     Dates: end: 20140401
  50. DIOVAN [Suspect]
     Active Substance: VALSARTAN
     Dosage: 40 MG, UNK
     Route: 048
     Dates: start: 20160313
  51. PREDONINE [Suspect]
     Active Substance: PREDNISOLONE
     Dosage: 5 MG, UNK
     Route: 048
  52. PREDONINE [Suspect]
     Active Substance: PREDNISOLONE
     Dosage: 1.25 MG, QOD
     Route: 048
     Dates: start: 201611
  53. PROGRAF [Concomitant]
     Active Substance: TACROLIMUS\TACROLIMUS ANHYDROUS
     Dosage: 0.2 MG, UNK
     Route: 048
     Dates: start: 20160313, end: 20161208
  54. CERTICAN [Suspect]
     Active Substance: EVEROLIMUS
     Dosage: 1.25 MG, UNK
     Route: 048
     Dates: start: 20160313, end: 20160315
  55. PREDONINE [Suspect]
     Active Substance: PREDNISOLONE
     Indication: HEART TRANSPLANT
     Dosage: 10 MG/7.5 MG, QOD
     Route: 048
     Dates: start: 20121119
  56. TRAZENTA [Concomitant]
     Active Substance: LINAGLIPTIN
     Indication: DIABETES MELLITUS
     Dosage: 5 MG, UNK
     Route: 048
     Dates: start: 20140313
  57. TRAZENTA [Concomitant]
     Active Substance: LINAGLIPTIN
     Dosage: 5 MG, UNK
     Route: 048
     Dates: start: 20160313
  58. LIPITOR [Concomitant]
     Active Substance: ATORVASTATIN CALCIUM
     Indication: HYPERLIPIDAEMIA
     Dosage: 5-10 MG, UNK
     Route: 048
     Dates: start: 20140313
  59. ATORVASTATIN [Concomitant]
     Active Substance: ATORVASTATIN
     Indication: HYPERLIPIDAEMIA
     Dosage: 5 MG, UNK
     Route: 048
     Dates: start: 20160902

REACTIONS (7)
  - Dehydration [Recovered/Resolved]
  - Heart transplant rejection [Recovered/Resolved]
  - Atrial flutter [Recovered/Resolved]
  - Renal impairment [Recovering/Resolving]
  - Urine output decreased [Unknown]
  - Heart transplant rejection [Recovered/Resolved]
  - Tachycardia [Recovered/Resolved]

NARRATIVE: CASE EVENT DATE: 20140401
